FAERS Safety Report 21369323 (Version 4)
Quarter: 2023Q1

REPORT INFORMATION
  Report Type: Report from Study
  Country: AR (occurrence: AR)
  Receive Date: 20220923
  Receipt Date: 20230309
  Transmission Date: 20230418
  Serious: Yes (Life-Threatening, Other)
  Sender: FDA-Public Use
  Company Number: AR-NOVARTISPH-NVSC2022AR066959

PATIENT
  Age: 51 Year
  Sex: Female

DRUGS (6)
  1. KISQALI [Suspect]
     Active Substance: RIBOCICLIB
     Indication: Breast cancer metastatic
     Dosage: 600 MG, QD
     Route: 048
     Dates: start: 20210314
  2. KISQALI [Suspect]
     Active Substance: RIBOCICLIB
     Dosage: 200 MG, TID
     Route: 048
     Dates: start: 20220314
  3. KISQALI [Suspect]
     Active Substance: RIBOCICLIB
     Dosage: UNK, BID
     Route: 065
  4. KISQALI [Suspect]
     Active Substance: RIBOCICLIB
     Dosage: 400 MG, QD
     Route: 048
  5. KISQALI [Suspect]
     Active Substance: RIBOCICLIB
     Dosage: 400 MG, QD
     Route: 048
     Dates: start: 20220313
  6. FULVESTRANT [Suspect]
     Active Substance: FULVESTRANT
     Indication: Product used for unknown indication
     Dosage: UNK
     Route: 065

REACTIONS (31)
  - Pneumothorax [Unknown]
  - Toxicity to various agents [Unknown]
  - Neoplasm progression [Unknown]
  - Poisoning [Unknown]
  - Gastric disorder [Unknown]
  - Hyperhidrosis [Unknown]
  - Hypersensitivity [Unknown]
  - Discomfort [Unknown]
  - Formication [Unknown]
  - Sensory disturbance [Unknown]
  - Decreased immune responsiveness [Unknown]
  - Tachycardia [Unknown]
  - Blister [Unknown]
  - Acarodermatitis [Unknown]
  - Influenza [Unknown]
  - Pharyngitis [Unknown]
  - Abdominal pain upper [Unknown]
  - Neutrophil count decreased [Unknown]
  - Nasopharyngitis [Unknown]
  - Rash [Unknown]
  - Fatigue [Unknown]
  - COVID-19 [Unknown]
  - Full blood count decreased [Unknown]
  - Bronchitis [Unknown]
  - Malaise [Unknown]
  - Vertigo [Unknown]
  - Dizziness [Unknown]
  - Alopecia [Unknown]
  - Nausea [Unknown]
  - Drug ineffective [Unknown]
  - Inappropriate schedule of product administration [Unknown]

NARRATIVE: CASE EVENT DATE: 20220701
